FAERS Safety Report 6595988-7 (Version None)
Quarter: 2010Q1

REPORT INFORMATION
  Report Type: 
  Country: None (occurrence: None)
  Receive Date: 20100219
  Receipt Date: 20100219
  Transmission Date: 20100710
  Serious: Yes (Hospitalization)
  Sender: FDA-Public Use
  Company Number: None

PATIENT
  Age: 49 Year
  Sex: Male
  Weight: 94.3 kg

DRUGS (1)
  1. MORPHINE [Suspect]
     Indication: PAIN
     Dates: start: 20090827, end: 20090827

REACTIONS (4)
  - DYSPNOEA [None]
  - RESPIRATORY DEPRESSION [None]
  - SOMNOLENCE [None]
  - UNRESPONSIVE TO STIMULI [None]
